FAERS Safety Report 25623077 (Version 1)
Quarter: 2025Q3

REPORT INFORMATION
  Report Type: Spontaneous
  Country: US (occurrence: US)
  Receive Date: 20250730
  Receipt Date: 20250730
  Transmission Date: 20251021
  Serious: Yes (Life-Threatening, Hospitalization)
  Sender: MYLAN
  Company Number: US-MYLANLABS-2025M1063971

PATIENT
  Age: 22 Year
  Sex: Female

DRUGS (12)
  1. TRANEXAMIC ACID [Suspect]
     Active Substance: TRANEXAMIC ACID
     Indication: Haemorrhage prophylaxis
  2. TRANEXAMIC ACID [Suspect]
     Active Substance: TRANEXAMIC ACID
     Route: 055
  3. TRANEXAMIC ACID [Suspect]
     Active Substance: TRANEXAMIC ACID
     Route: 055
  4. TRANEXAMIC ACID [Suspect]
     Active Substance: TRANEXAMIC ACID
  5. CISPLATIN [Concomitant]
     Active Substance: CISPLATIN
     Indication: Choriocarcinoma
  6. CISPLATIN [Concomitant]
     Active Substance: CISPLATIN
     Indication: Metastases to lung
     Route: 065
  7. CISPLATIN [Concomitant]
     Active Substance: CISPLATIN
     Route: 065
  8. CISPLATIN [Concomitant]
     Active Substance: CISPLATIN
  9. ETOPOSIDE [Concomitant]
     Active Substance: ETOPOSIDE
     Indication: Choriocarcinoma
  10. ETOPOSIDE [Concomitant]
     Active Substance: ETOPOSIDE
     Indication: Metastases to lung
     Route: 065
  11. ETOPOSIDE [Concomitant]
     Active Substance: ETOPOSIDE
     Route: 065
  12. ETOPOSIDE [Concomitant]
     Active Substance: ETOPOSIDE

REACTIONS (2)
  - Drug ineffective [Unknown]
  - Off label use [Unknown]
